FAERS Safety Report 9365703 (Version 1)
Quarter: 2013Q2

REPORT INFORMATION
  Report Type: Spontaneous
  Country: US (occurrence: None)
  Receive Date: 20130624
  Receipt Date: 20130624
  Transmission Date: 20140414
  Serious: Yes (Other)
  Sender: FDA-Public Use
  Company Number: None

PATIENT
  Age: 32 Year
  Sex: Female
  Weight: 56 kg

DRUGS (1)
  1. OXYMETAZOLINE [Suspect]
     Indication: RHINITIS ALLERGIC
     Dosage: 1 SPRAY IN EACH NOSTRIL QD.
     Route: 045
     Dates: start: 20130619, end: 20130619

REACTIONS (12)
  - Sneezing [None]
  - Instillation site pain [None]
  - Malaise [None]
  - Fatigue [None]
  - Aphasia [None]
  - Apparent death [None]
  - Hypersensitivity [None]
  - Dyspnoea [None]
  - Nervousness [None]
  - Hypotonia [None]
  - Hyperreflexia [None]
  - Bradycardia [None]
